FAERS Safety Report 5736332-4 (Version None)
Quarter: 2008Q2

REPORT INFORMATION
  Report Type: 
  Country: None (occurrence: None)
  Receive Date: 20080513
  Receipt Date: 20080506
  Transmission Date: 20081010
  Serious: Yes (Other)
  Sender: FDA-Public Use
  Company Number: US-ELI_LILLY_AND_COMPANY-US200804003147

PATIENT
  Sex: Male
  Weight: 119.27 kg

DRUGS (10)
  1. BYETTA [Suspect]
     Indication: TYPE 2 DIABETES MELLITUS
     Dosage: 5 UG, 2/D
     Route: 058
     Dates: start: 20070101, end: 20080228
  2. BYETTA [Suspect]
     Dosage: 10 UG, 2/D
     Route: 058
     Dates: start: 20080229, end: 20080303
  3. METFORMIN HCL [Concomitant]
     Dosage: UNK, UNKNOWN
  4. NORVASC [Concomitant]
     Dosage: UNK, UNKNOWN
  5. HYDROCHLOROTHIAZIDE [Concomitant]
     Dosage: UNK, UNKNOWN
  6. BENICAR [Concomitant]
     Dosage: UNK, UNKNOWN
  7. PRAVASTATIN [Concomitant]
     Dosage: UNK, UNKNOWN
  8. AMARYL [Concomitant]
     Dosage: UNK, UNKNOWN
  9. ACTOS [Concomitant]
     Dosage: UNK, UNKNOWN
     Dates: end: 20070101
  10. METFORMIN HCL [Concomitant]
     Dosage: UNK, UNKNOWN
     Dates: end: 20070101

REACTIONS (3)
  - NAUSEA [None]
  - PANCREATITIS [None]
  - WEIGHT DECREASED [None]
